FAERS Safety Report 20347704 (Version 2)
Quarter: 2022Q3

REPORT INFORMATION
  Report Type: Spontaneous
  Country: JP (occurrence: JP)
  Receive Date: 20220118
  Receipt Date: 20220726
  Transmission Date: 20221027
  Serious: Yes (Hospitalization, Other)
  Sender: FDA-Public Use
  Company Number: JP-BAYER-2022A004575

PATIENT
  Age: 80 Year
  Sex: Male
  Weight: 55 kg

DRUGS (10)
  1. XOFIGO [Suspect]
     Active Substance: RADIUM RA-223 DICHLORIDE
     Indication: Hormone-refractory prostate cancer
     Dosage: UNK UNK, ONCE
     Dates: start: 20211025, end: 20211025
  2. XOFIGO [Suspect]
     Active Substance: RADIUM RA-223 DICHLORIDE
     Indication: Metastases to bone
     Dosage: UNK UNK, ONCE
     Dates: start: 20211122, end: 20211122
  3. XOFIGO [Suspect]
     Active Substance: RADIUM RA-223 DICHLORIDE
     Indication: Hormone-refractory prostate cancer
     Dosage: UNK UNK, ONCE
     Dates: start: 20211220, end: 20211220
  4. ERLEADA [Suspect]
     Active Substance: APALUTAMIDE
     Dosage: DAILY DOSE 180 MG
     Route: 048
     Dates: start: 20211221, end: 20211231
  5. URSODIOL [Concomitant]
     Active Substance: URSODIOL
     Dosage: DAILY DOSE 300 MG
     Route: 048
  6. ZYTIGA [Concomitant]
     Active Substance: ABIRATERONE ACETATE
     Dosage: DAILY DOSE 1000 MG
     Route: 048
     Dates: end: 20211220
  7. PREDNISOLONE [Concomitant]
     Active Substance: PREDNISOLONE
     Dosage: DAILY DOSE 10 MG
     Route: 048
     Dates: end: 20211220
  8. PREDNISOLONE [Concomitant]
     Active Substance: PREDNISOLONE
     Dosage: DAILY DOSE 5MG
     Route: 048
     Dates: start: 20211221
  9. PREDNISOLONE [Concomitant]
     Active Substance: PREDNISOLONE
     Dosage: 30MG
  10. EPINASTINE HYDROCHLORIDE [Concomitant]
     Active Substance: EPINASTINE HYDROCHLORIDE
     Dosage: UNK
     Route: 048
     Dates: start: 20211221

REACTIONS (2)
  - Cardiac failure congestive [Recovering/Resolving]
  - Eosinophilic pneumonia [Recovered/Resolved]

NARRATIVE: CASE EVENT DATE: 20220102
